FAERS Safety Report 5002434-3 (Version None)
Quarter: 2006Q2

REPORT INFORMATION
  Report Type: 
  Country: None (occurrence: None)
  Receive Date: 20060510
  Receipt Date: 20060426
  Transmission Date: 20061013
  Serious: No
  Sender: FDA-Public Use
  Company Number: 224718

PATIENT
  Age: 64 Year
  Sex: Female
  Weight: 45.8 kg

DRUGS (4)
  1. AVASTIN [Suspect]
     Indication: COLON CANCER METASTATIC
     Dosage: 5 MG/KG, Q2W, INTRAVENOUS
     Route: 042
  2. IRINOTECAN HCL [Concomitant]
  3. LEUCOVORIN CALCIUM [Concomitant]
  4. FLUOROURACIL [Concomitant]

REACTIONS (4)
  - APHASIA [None]
  - CAPILLARY LEAK SYNDROME [None]
  - CONFUSIONAL STATE [None]
  - DUODENAL PERFORATION [None]
